FAERS Safety Report 17517236 (Version 1)
Quarter: 2020Q1

REPORT INFORMATION
  Report Type: Report from Study
  Country: BE (occurrence: BE)
  Receive Date: 20200309
  Receipt Date: 20200309
  Transmission Date: 20200409
  Serious: Yes (Other)
  Sender: FDA-Public Use
  Company Number: BE-JNJFOC-20200304927

PATIENT
  Age: 57 Year
  Sex: Female

DRUGS (2)
  1. MESALAZINE [Concomitant]
     Active Substance: MESALAMINE
     Indication: COLITIS MICROSCOPIC
     Route: 065
  2. REMICADE [Suspect]
     Active Substance: INFLIXIMAB
     Indication: COLITIS ULCERATIVE
     Route: 042

REACTIONS (1)
  - Osteonecrosis of jaw [Recovered/Resolved]
